FAERS Safety Report 8362815-7 (Version None)
Quarter: 2012Q2

REPORT INFORMATION
  Report Type: 
  Country: None (occurrence: None)
  Receive Date: 20120516
  Receipt Date: 20120502
  Transmission Date: 20120825
  Serious: Yes (Other)
  Sender: FDA-Public Use
  Company Number: FR-ASTRAZENECA-2012SE28903

PATIENT
  Age: 16908 Day
  Sex: Female

DRUGS (1)
  1. TENORMIN [Suspect]
     Indication: MYOCARDIAL INFARCTION
     Dosage: DAILY
     Route: 048
     Dates: start: 20110101, end: 20120426

REACTIONS (2)
  - PRINZMETAL ANGINA [None]
  - TACHYCARDIA [None]
